FAERS Safety Report 8293749-4 (Version None)
Quarter: 2012Q2

REPORT INFORMATION
  Report Type: 
  Country: None (occurrence: None)
  Receive Date: 20120413
  Receipt Date: 20120403
  Transmission Date: 20120825
  Serious: Yes (Other)
  Sender: FDA-Public Use
  Company Number: KR-1191556

PATIENT
  Age: 53 Year
  Sex: Male

DRUGS (2)
  1. FLUOROMETHOLONE [Suspect]
     Dosage: (6 TIMES A DAY OPHTHALMIC)
     Route: 047
  2. APRACLONIDINE 0.5 % OPHTHALMIC SOLUTION (TOPICAL APRACLONIDINE 0.5%) [Suspect]
     Dosage: (INSTILLED  SOLUTION  1 HOUR BEFORE AND IMMEDIATELY AFTER THE TREATMENT OPHTHALMIC)
     Route: 047

REACTIONS (6)
  - VISION BLURRED [None]
  - PAPILLOEDEMA [None]
  - INTRAOCULAR PRESSURE INCREASED [None]
  - CORNEAL EPITHELIAL MICROCYSTS [None]
  - ANTERIOR CHAMBER DISORDER [None]
  - VISUAL ACUITY TESTS ABNORMAL [None]
